FAERS Safety Report 12816858 (Version 1)
Quarter: 2016Q4

REPORT INFORMATION
  Report Type: Spontaneous
  Country: US (occurrence: US)
  Receive Date: 20161006
  Receipt Date: 20161006
  Transmission Date: 20170207
  Serious: No
  Sender: FDA-Public Use
  Company Number: US-BIOGEN-2016BI00298518

PATIENT
  Age: 4 Year
  Sex: Female

DRUGS (1)
  1. TECFIDERA [Suspect]
     Active Substance: DIMETHYL FUMARATE
     Indication: ACCIDENTAL EXPOSURE TO PRODUCT
     Route: 065
     Dates: start: 20160926, end: 20160926

REACTIONS (2)
  - Accidental exposure to product packaging by child [Unknown]
  - Flushing [Unknown]

NARRATIVE: CASE EVENT DATE: 20160926
